FAERS Safety Report 9614063 (Version 1)
Quarter: 2013Q4

REPORT INFORMATION
  Report Type: Spontaneous
  Country: US (occurrence: US)
  Receive Date: 20131011
  Receipt Date: 20131011
  Transmission Date: 20140711
  Serious: No
  Sender: FDA-Public Use
  Company Number: US-B.I. PHARMACEUTICALS,INC./RIDGEFIELD-2013-BI-31094BP

PATIENT
  Sex: Female

DRUGS (8)
  1. COMBIVENT [Suspect]
     Indication: CHRONIC OBSTRUCTIVE PULMONARY DISEASE
     Dosage: STRENGTH: 18 MCG / 103 MCG; DAILY DOSE: 144MCG/824 MCG
     Route: 055
     Dates: start: 1996, end: 201305
  2. ASPIRIN [Concomitant]
     Indication: TACHYCARDIA
     Dosage: STRENGTH: 5 GRAINS; DAILY DOSE: 5 GRAINS
     Route: 048
     Dates: start: 2001
  3. CLONAZEPAM [Concomitant]
     Indication: EPILEPSY
     Dosage: 1 MG
     Route: 048
     Dates: start: 1998
  4. VERAPAMIL [Concomitant]
     Indication: BLOOD PRESSURE INCREASED
     Dosage: 90 MG
     Route: 048
     Dates: start: 2000
  5. VERAPAMIL [Concomitant]
     Indication: TACHYCARDIA
  6. MIRTAZAPINE [Concomitant]
     Indication: DECREASED APPETITE
     Dosage: 15 MG
     Route: 048
     Dates: start: 1999
  7. POTASSIUM [Concomitant]
     Indication: BLOOD POTASSIUM DECREASED
     Dosage: 40 MEQ
     Route: 048
     Dates: start: 2003
  8. SINGULAIR [Concomitant]
     Indication: ASTHMA
     Dosage: 10 MG
     Route: 048
     Dates: start: 2003

REACTIONS (1)
  - Arthritis [Not Recovered/Not Resolved]
